FAERS Safety Report 8258816-X (Version None)
Quarter: 2012Q1

REPORT INFORMATION
  Report Type: 
  Country: None (occurrence: None)
  Receive Date: 20120322
  Receipt Date: 20120206
  Transmission Date: 20120608
  Serious: Yes (Hospitalization)
  Sender: FDA-Public Use
  Company Number: UTC-015280

PATIENT
  Age: 46 Year
  Sex: Female
  Weight: 98.6 kg

DRUGS (4)
  1. TYVASO [Suspect]
     Indication: ATRIAL SEPTAL DEFECT
     Dosage: 72 MCG (18 MCG,4 IN 1 D),INHALATION
     Route: 055
     Dates: start: 20111121
  2. COUMADIN [Concomitant]
  3. DIURETICS (DIURETICS) [Concomitant]
  4. TRACLEER [Concomitant]

REACTIONS (6)
  - DYSPEPSIA [None]
  - INTERNATIONAL NORMALISED RATIO INCREASED [None]
  - NAUSEA [None]
  - ABDOMINAL PAIN UPPER [None]
  - CHEST PAIN [None]
  - VOMITING [None]
